FAERS Safety Report 20923329 (Version 3)
Quarter: 2022Q3

REPORT INFORMATION
  Report Type: Report from Study
  Country: US (occurrence: US)
  Receive Date: 20220607
  Receipt Date: 20220714
  Transmission Date: 20221027
  Serious: Yes (Other)
  Sender: FDA-Public Use
  Company Number: US-NOVARTISTESTPH-NVSC2022US127236

PATIENT
  Sex: Female

DRUGS (1)
  1. MAYZENT [Suspect]
     Active Substance: SIPONIMOD
     Indication: Multiple sclerosis
     Dosage: UNK
     Route: 048
     Dates: end: 202112

REACTIONS (5)
  - Multiple sclerosis relapse [Unknown]
  - Gait inability [Unknown]
  - COVID-19 [Unknown]
  - Feeling abnormal [Unknown]
  - Drug ineffective [Unknown]
